FAERS Safety Report 12740836 (Version 1)
Quarter: 2016Q3

REPORT INFORMATION
  Report Type: Spontaneous
  Country: US (occurrence: US)
  Receive Date: 20160914
  Receipt Date: 20160914
  Transmission Date: 20161109
  Serious: No
  Sender: FDA-Public Use
  Company Number: US-TEVA-618812USA

PATIENT
  Age: 15 Year
  Sex: Female

DRUGS (2)
  1. PROZAC [Concomitant]
     Active Substance: FLUOXETINE HYDROCHLORIDE
     Route: 048
  2. FLUOXETINE [Suspect]
     Active Substance: FLUOXETINE HYDROCHLORIDE
     Route: 048

REACTIONS (6)
  - Swelling face [Recovered/Resolved]
  - Incorrect product formulation administered [Unknown]
  - Urticaria [Recovered/Resolved]
  - Wrong patient received medication [Unknown]
  - Eye swelling [Recovered/Resolved]
  - Lacrimation increased [Recovered/Resolved]
